FAERS Safety Report 12647722 (Version 1)
Quarter: 2016Q3

REPORT INFORMATION
  Report Type: Spontaneous
  Country: FR (occurrence: FR)
  Receive Date: 20160812
  Receipt Date: 20160812
  Transmission Date: 20161109
  Serious: Yes (Hospitalization)
  Sender: FDA-Public Use
  Company Number: FR-HQ SPECIALTY-FR-2016INT000787

PATIENT
  Age: 52 Year
  Sex: Male

DRUGS (1)
  1. METHOTREXATE SODIUM. [Suspect]
     Active Substance: METHOTREXATE SODIUM
     Indication: PSORIASIS
     Dosage: UNK
     Route: 065

REACTIONS (5)
  - Skin toxicity [Recovered/Resolved]
  - Dermatitis exfoliative [Recovered/Resolved]
  - Skin graft detachment [Recovered/Resolved]
  - Toxicity to various agents [Recovered/Resolved]
  - Skin ulcer [Recovered/Resolved]
